FAERS Safety Report 8308593 (Version 3)
Quarter: 2012Q4

REPORT INFORMATION
  Report Type: Report from Study
  Country: FI (occurrence: FI)
  Receive Date: 20111222
  Receipt Date: 20121226
  Transmission Date: 20130627
  Serious: Yes (Other)
  Sender: FDA-Public Use
  Company Number: PHHO2011FI019876

PATIENT
  Age: 50 Year
  Sex: Female
  Weight: 61 kg

DRUGS (11)
  1. FTY [Suspect]
     Indication: MULTIPLE SCLEROSIS
     Dosage: 0.5 mg, QD
     Route: 048
     Dates: start: 20101120, end: 20111129
  2. SEPRAM [Concomitant]
     Indication: DEPRESSION
     Dosage: 20 mg, BID
     Route: 048
     Dates: start: 20060511
  3. STESOLID [Concomitant]
     Indication: DEPRESSION
     Dosage: 5 mg, PRN
     Route: 048
     Dates: start: 20011001
  4. ARDINEX [Concomitant]
     Indication: MUSCULOSKELETAL PAIN
     Dosage: 200/30 mg, PRN
     Route: 048
     Dates: start: 20080501
  5. ARDINEX [Concomitant]
     Indication: ROTATOR CUFF SYNDROME
  6. ZOPINOX [Concomitant]
     Indication: SLEEP DISORDER
     Dosage: 7.5 mg, PRN
     Route: 048
     Dates: start: 20080128
  7. IBUMAX [Concomitant]
     Indication: HEADACHE
     Dosage: 400 mg, PRN
     Dates: start: 200604
  8. PANACOD [Concomitant]
     Indication: MUSCULOSKELETAL PAIN
     Dosage: UNK
     Dates: start: 20070602
  9. COLDREX [Concomitant]
     Indication: NASOPHARYNGITIS
     Dosage: UNK
     Dates: start: 20090604, end: 20090614
  10. NORITREN [Concomitant]
     Indication: EPICONDYLITIS
     Dosage: UNK
     Dates: start: 20091204, end: 20091214
  11. DICLOFENAC [Concomitant]
     Indication: LIGAMENT SPRAIN
     Dosage: UNK
     Dates: start: 20091220, end: 20091227

REACTIONS (2)
  - Adenocarcinoma of colon [Recovering/Resolving]
  - Concomitant disease progression [Unknown]
